FAERS Safety Report 7553759-9 (Version None)
Quarter: 2011Q2

REPORT INFORMATION
  Report Type: 
  Country: None (occurrence: None)
  Receive Date: 20110617
  Receipt Date: 20110610
  Transmission Date: 20111010
  Serious: Yes (Hospitalization)
  Sender: FDA-Public Use
  Company Number: GB-ASTELLAS-2011EU003166

PATIENT
  Sex: Male

DRUGS (6)
  1. VESICARE [Suspect]
     Indication: URINARY INCONTINENCE
     Dosage: 10 MG, UID/QD
     Route: 048
     Dates: start: 20100408
  2. LANSOPRAZOLE [Concomitant]
     Dosage: 15 MG, UNKNOWN/D
     Route: 048
     Dates: start: 20070101
  3. ASPIRIN [Concomitant]
     Dosage: 75 MG, UNKNOWN/D
     Route: 048
     Dates: start: 20070101
  4. VESICARE [Suspect]
     Dosage: 5 MG, UNKNOWN/D
     Route: 065
  5. AMLODIPINE [Concomitant]
     Dosage: 5 MG, BID
     Route: 048
     Dates: start: 20070101
  6. ATENOLOL [Concomitant]
     Dosage: UNK
     Route: 048
     Dates: start: 20070101

REACTIONS (3)
  - HALLUCINATION [None]
  - BLINDNESS [None]
  - CEREBROVASCULAR ACCIDENT [None]
